FAERS Safety Report 7581722-0 (Version None)
Quarter: 2011Q2

REPORT INFORMATION
  Report Type: 
  Country: None (occurrence: None)
  Receive Date: 20110629
  Receipt Date: 20110613
  Transmission Date: 20111010
  Serious: Yes (Hospitalization, Other)
  Sender: FDA-Public Use
  Company Number: US-BAYER-2011-018099

PATIENT
  Sex: Female
  Weight: 61.224 kg

DRUGS (4)
  1. LOVENOX [Concomitant]
     Indication: PULMONARY EMBOLISM
  2. YAZ [Suspect]
     Indication: ACNE
     Dosage: UNK
     Dates: start: 20080101, end: 20090101
  3. COUMADIN [Concomitant]
     Indication: PULMONARY EMBOLISM
  4. YAZ [Suspect]
     Indication: CONTRACEPTION

REACTIONS (7)
  - ABDOMINAL PAIN [None]
  - DEPRESSION [None]
  - PULMONARY EMBOLISM [None]
  - BACK PAIN [None]
  - INJURY [None]
  - DISTURBANCE IN ATTENTION [None]
  - ANXIETY [None]
